FAERS Safety Report 17075957 (Version 2)
Quarter: 2020Q1

REPORT INFORMATION
  Report Type: Spontaneous
  Country: US (occurrence: US)
  Receive Date: 20191126
  Receipt Date: 20200325
  Transmission Date: 20200409
  Serious: Yes (Hospitalization, Other)
  Sender: FDA-Public Use
  Company Number: US-GILEAD-2019-0439503

PATIENT
  Age: 53 Year
  Sex: Male
  Weight: 91.61 kg

DRUGS (44)
  1. EPZICOM [Concomitant]
     Active Substance: ABACAVIR SULFATE\LAMIVUDINE
  2. TESTOSTERONE CYPIONATE. [Concomitant]
     Active Substance: TESTOSTERONE CYPIONATE
  3. CRESTOR [Concomitant]
     Active Substance: ROSUVASTATIN CALCIUM
  4. HYDROCORT BUTYRATE [Concomitant]
     Active Substance: HYDROCORTISONE BUTYRATE
  5. CLARITHROMYCIN. [Concomitant]
     Active Substance: CLARITHROMYCIN
  6. AZITHROMYCIN ANHYDROUS. [Concomitant]
     Active Substance: AZITHROMYCIN ANHYDROUS
  7. ROSUVASTATIN. [Concomitant]
     Active Substance: ROSUVASTATIN
  8. VIBRAMYCIN [DOXYCYCLINE CALCIUM] [Concomitant]
  9. TENORMIN [Concomitant]
     Active Substance: ATENOLOL
  10. PENICILLIN-VK [Concomitant]
     Active Substance: PENICILLIN V POTASSIUM
  11. DULOXETINE. [Concomitant]
     Active Substance: DULOXETINE
  12. ROPINIROLE. [Concomitant]
     Active Substance: ROPINIROLE
  13. ALPRAZOLAM. [Concomitant]
     Active Substance: ALPRAZOLAM
  14. CEPHALEXIN HCL [Concomitant]
     Active Substance: CEPHALEXIN HYDROCHLORIDE
  15. DOLOPHINE [Concomitant]
     Active Substance: METHADONE HYDROCHLORIDE
  16. ELIQUIS [Concomitant]
     Active Substance: APIXABAN
  17. VIRAMUNE XR [Concomitant]
     Active Substance: NEVIRAPINE
  18. VITAMIN C [Concomitant]
     Active Substance: ASCORBIC ACID
  19. OPANA [Concomitant]
     Active Substance: OXYMORPHONE HYDROCHLORIDE
  20. FLUOROURACIL. [Concomitant]
     Active Substance: FLUOROURACIL
  21. WELLBUTRIN [Concomitant]
     Active Substance: BUPROPION HYDROCHLORIDE
  22. MAXALT [Concomitant]
     Active Substance: RIZATRIPTAN BENZOATE
  23. CYMBALTA [Concomitant]
     Active Substance: DULOXETINE HYDROCHLORIDE
  24. REQUIP [Concomitant]
     Active Substance: ROPINIROLE HYDROCHLORIDE
  25. TRUVADA [Suspect]
     Active Substance: EMTRICITABINE\TENOFOVIR DISOPROXIL FUMARATE
     Indication: HIV INFECTION
     Dosage: UNK
     Route: 048
     Dates: start: 20100706, end: 20140302
  26. LOSARTAN. [Concomitant]
     Active Substance: LOSARTAN
  27. VIRAMUNE [Concomitant]
     Active Substance: NEVIRAPINE
  28. MORPHINE SULFATE. [Concomitant]
     Active Substance: MORPHINE SULFATE
  29. ALDACTONE [Concomitant]
     Active Substance: SPIRONOLACTONE
  30. ZOVIRAX [Concomitant]
     Active Substance: ACYCLOVIR
  31. COLACE [Concomitant]
     Active Substance: DOCUSATE SODIUM
  32. VALIUM [Concomitant]
     Active Substance: DIAZEPAM
  33. ZETIA [Concomitant]
     Active Substance: EZETIMIBE
  34. SOMA [Concomitant]
     Active Substance: CARISOPRODOL
  35. NIASPAN [Concomitant]
     Active Substance: NIACIN
  36. GABAPENTIN. [Concomitant]
     Active Substance: GABAPENTIN
  37. HYDROCODONE/ACETAMINOPHEN [Concomitant]
     Active Substance: ACETAMINOPHEN\HYDROCODONE
  38. FLUTICASONE. [Concomitant]
     Active Substance: FLUTICASONE
  39. AMOXICILLIN + CLAV. POTASSIUM [Concomitant]
     Active Substance: AMOXICILLIN\CLAVULANATE POTASSIUM
  40. MARINOL [Concomitant]
     Active Substance: DRONABINOL
  41. TRICOR [Concomitant]
     Active Substance: FENOFIBRATE
  42. LOVAZA [Concomitant]
     Active Substance: OMEGA-3-ACID ETHYL ESTERS
  43. IBUPROFEN. [Concomitant]
     Active Substance: IBUPROFEN
  44. COREG [Concomitant]
     Active Substance: CARVEDILOL

REACTIONS (9)
  - Anxiety [Unknown]
  - Anhedonia [Unknown]
  - Pain [Unknown]
  - Cardiac failure [Not Recovered/Not Resolved]
  - Emotional distress [Unknown]
  - Economic problem [Unknown]
  - Chronic kidney disease [Not Recovered/Not Resolved]
  - Osteoporosis [Not Recovered/Not Resolved]
  - Proteinuria [Unknown]

NARRATIVE: CASE EVENT DATE: 20110624
